FAERS Safety Report 12582396 (Version 2)
Quarter: 2016Q3

REPORT INFORMATION
  Report Type: Spontaneous
  Country: IT (occurrence: IT)
  Receive Date: 20160722
  Receipt Date: 20160930
  Transmission Date: 20161109
  Serious: Yes (Disabling)
  Sender: FDA-Public Use
  Company Number: IT-TEVA-677446ACC

PATIENT
  Age: 39 Year
  Sex: Male

DRUGS (5)
  1. HALDOL - 2MG/ML GOCCE ORALI, SOLUZIONE - JANSSEN CILAG S.P.A.? [Concomitant]
     Indication: PRODUCT USED FOR UNKNOWN INDICATION
     Dosage: 10 GTT
     Route: 048
  2. HUMIRA [Suspect]
     Active Substance: ADALIMUMAB
     Indication: PSORIASIS
     Dosage: 40 MG CYCLICAL
     Route: 058
     Dates: start: 20131201, end: 20160610
  3. TOTALIP - 10 MG COMPRESSE - LABORATORI GUIDOTTI S.P.A.? [Concomitant]
     Indication: PRODUCT USED FOR UNKNOWN INDICATION
     Dosage: 1 DF
     Route: 048
  4. CARBOLITHIUM - 300 MG CAPSULE RIGIDE - TEVA ITALIA S.R.L. [Suspect]
     Active Substance: LITHIUM CARBONATE
     Indication: BIPOLAR DISORDER
     Dosage: 300 MILLIGRAM DAILY;
     Route: 048
  5. DEPAKIN CHRONO - 500 MG COMPRESSE A RILASCIO PROLUNGATO - SANOFI S.P.A [Concomitant]
     Active Substance: VALPROATE SODIUM
     Indication: PRODUCT USED FOR UNKNOWN INDICATION
     Dosage: 2 DF
     Route: 048

REACTIONS (2)
  - Renal failure [Not Recovered/Not Resolved]
  - Psoriasis [Not Recovered/Not Resolved]

NARRATIVE: CASE EVENT DATE: 20160310
